FAERS Safety Report 23332714 (Version 1)
Quarter: 2023Q4

REPORT INFORMATION
  Report Type: Spontaneous
  Country: US (occurrence: US)
  Receive Date: 20231222
  Receipt Date: 20231222
  Transmission Date: 20240109
  Serious: Yes (Other)
  Sender: FDA-Public Use
  Company Number: US-MARINUS PHARMACEUTICALS, INC.-MAR2023000162

PATIENT

DRUGS (2)
  1. ZTALMY [Suspect]
     Active Substance: GANAXOLONE
     Indication: Product used for unknown indication
     Dosage: 75 MILLIGRAM, TID
     Route: 048
     Dates: start: 2023
  2. ZTALMY [Suspect]
     Active Substance: GANAXOLONE
     Dosage: UNK
     Route: 048
     Dates: start: 2023

REACTIONS (1)
  - Change in seizure presentation [Unknown]
